FAERS Safety Report 19098942 (Version 1)
Quarter: 2021Q2

REPORT INFORMATION
  Report Type: Report from Study
  Country: LB (occurrence: LB)
  Receive Date: 20210406
  Receipt Date: 20210406
  Transmission Date: 20210717
  Serious: Yes (Hospitalization, Other)
  Sender: FDA-Public Use
  Company Number: LB-SEATTLE GENETICS-2021SGN01648

PATIENT
  Sex: Female

DRUGS (1)
  1. BRENTUXIMAB VEDOTIN [Suspect]
     Active Substance: BRENTUXIMAB VEDOTIN
     Indication: ANAPLASTIC LARGE-CELL LYMPHOMA
     Dosage: 150 MILLIGRAM
     Route: 042
     Dates: start: 20201223

REACTIONS (8)
  - Intestinal haemorrhage [Unknown]
  - Blood pressure increased [Unknown]
  - Fatigue [Unknown]
  - Asthenia [Unknown]
  - Renal impairment [Unknown]
  - Blood glucose increased [Unknown]
  - Pneumonia [Unknown]
  - Decreased appetite [Unknown]
